FAERS Safety Report 7673613-1 (Version None)
Quarter: 2011Q3

REPORT INFORMATION
  Report Type: 
  Country: None (occurrence: None)
  Receive Date: 20110810
  Receipt Date: 20110805
  Transmission Date: 20111222
  Serious: Yes (Other)
  Sender: FDA-Public Use
  Company Number: IE-AMGEN-IRLSP2011039956

PATIENT
  Sex: Female

DRUGS (8)
  1. LANSOPRAZOLE [Concomitant]
     Dosage: 30 MG, QD
  2. ANTINEOPLASTIC AGENTS [Concomitant]
  3. NEULASTA [Suspect]
     Indication: CHEMOTHERAPY
     Dosage: 6 MG, Q2WK
     Route: 058
     Dates: start: 20110415
  4. SENOKOT [Concomitant]
     Dosage: UNK UNK, PRN
  5. APREPITANT [Concomitant]
     Dosage: UNK UNK, PER CHEMO REGIM
  6. MOTILIUM                           /00498201/ [Concomitant]
     Dosage: 20 MG, PRN
  7. IMODIUM [Concomitant]
     Dosage: UNK UNK, PRN
  8. DEXAMETHASONE [Concomitant]
     Dosage: 4 MG, PER CHEMO REGIM

REACTIONS (4)
  - THERAPY REGIMEN CHANGED [None]
  - DRUG ADMINISTRATION ERROR [None]
  - INJURY ASSOCIATED WITH DEVICE [None]
  - NEUTROPENIA [None]
